FAERS Safety Report 5590320-X (Version None)
Quarter: 2008Q1

REPORT INFORMATION
  Report Type: 
  Country: None (occurrence: None)
  Receive Date: 20080114
  Receipt Date: 20080108
  Transmission Date: 20080703
  Serious: Yes (Hospitalization, Other)
  Sender: FDA-Public Use
  Company Number: GB-RANBAXY-2008RR-12486

PATIENT

DRUGS (4)
  1. DICLOFENAC SODIQUE O.P.I.H.  ENFANTS 25MG SUPPOSITOIRE [Suspect]
     Indication: ANALGESIA
     Dosage: 25 MG, UNK
     Route: 054
  2. IBUPROFEN TABLETS BP 200MG [Suspect]
     Indication: ABDOMINAL PAIN
     Dosage: 150 MG, UNK
     Route: 048
  3. CEFTRIAXONE [Concomitant]
     Dosage: 2 G, UNK
     Route: 042
  4. NIFEDIPINE [Concomitant]
     Indication: HYPERTENSION

REACTIONS (6)
  - ANURIA [None]
  - BLOOD CREATININE INCREASED [None]
  - GASTROENTERITIS [None]
  - PERITONEAL DIALYSIS [None]
  - RENAL FAILURE ACUTE [None]
  - RENAL TUBULAR NECROSIS [None]
